FAERS Safety Report 9571222 (Version 1)
Quarter: 2013Q4

REPORT INFORMATION
  Report Type: Spontaneous
  Country: US (occurrence: US)
  Receive Date: 20131001
  Receipt Date: 20131001
  Transmission Date: 20140711
  Serious: Yes (Hospitalization, Other)
  Sender: FDA-Public Use
  Company Number: CHPA2013US014878

PATIENT
  Sex: 0

DRUGS (3)
  1. IBUPROFEN [Suspect]
     Dosage: UNK,UNK
     Route: 064
  2. TYLENOL [Suspect]
     Dosage: UNK,UNK
     Route: 064
  3. INSULIN [Suspect]
     Route: 064

REACTIONS (4)
  - Jaundice neonatal [Recovered/Resolved]
  - Sleep apnoea syndrome [Recovered/Resolved]
  - Premature baby [Unknown]
  - Foetal exposure during pregnancy [Unknown]
